FAERS Safety Report 16049850 (Version 1)
Quarter: 2019Q1

REPORT INFORMATION
  Report Type: Spontaneous
  Country: IN (occurrence: IN)
  Receive Date: 20190307
  Receipt Date: 20190307
  Transmission Date: 20190418
  Serious: Yes (Death)
  Sender: FDA-Public Use
  Company Number: IN-IMPAX LABORATORIES, LLC-2019-IPXL-00642

PATIENT

DRUGS (1)
  1. DIGOXIN. [Suspect]
     Active Substance: DIGOXIN
     Indication: RHEUMATIC HEART DISEASE
     Dosage: UNK
     Route: 065

REACTIONS (1)
  - Adverse event [Fatal]
